FAERS Safety Report 24609440 (Version 1)
Quarter: 2024Q4

REPORT INFORMATION
  Report Type: Spontaneous
  Country: IL (occurrence: IL)
  Receive Date: 20241112
  Receipt Date: 20241112
  Transmission Date: 20250115
  Serious: Yes (Other)
  Sender: ELI LILLY AND COMPANY
  Company Number: IL-ELI_LILLY_AND_COMPANY-IL202411001013

PATIENT
  Age: 53 Year
  Sex: Female

DRUGS (5)
  1. VERZENIO [Suspect]
     Active Substance: ABEMACICLIB
     Indication: Breast cancer metastatic
     Dosage: 100 MG, BID
     Route: 065
     Dates: start: 202401
  2. VERZENIO [Suspect]
     Active Substance: ABEMACICLIB
     Dosage: 100 MG, BID
     Route: 065
  3. LETROZOLE [Concomitant]
     Active Substance: LETROZOLE
     Indication: Breast cancer metastatic
  4. CANNABIS SATIVA FLOWERING TOP [Concomitant]
     Active Substance: CANNABIS SATIVA FLOWERING TOP
     Indication: Product used for unknown indication
  5. CIMICIFUGA AL [Concomitant]
     Indication: Product used for unknown indication

REACTIONS (14)
  - Malignant melanoma in situ [Unknown]
  - Palpitations [Recovering/Resolving]
  - Abdominal pain [Unknown]
  - Purulence [Unknown]
  - Disturbance in attention [Unknown]
  - Taste disorder [Recovering/Resolving]
  - Insomnia [Unknown]
  - Dizziness [Unknown]
  - Nausea [Unknown]
  - Decreased appetite [Unknown]
  - Diarrhoea [Unknown]
  - Alopecia [Unknown]
  - Fatigue [Unknown]
  - Asthenia [Recovering/Resolving]
